FAERS Safety Report 5713728-8 (Version None)
Quarter: 2008Q2

REPORT INFORMATION
  Report Type: 
  Country: None (occurrence: None)
  Receive Date: 20080418
  Receipt Date: 20080404
  Transmission Date: 20081010
  Serious: Yes (Life-Threatening, Other)
  Sender: FDA-Public Use
  Company Number: 2004JP000529

PATIENT
  Age: 4 Year
  Sex: Male

DRUGS (2)
  1. PROGRAF [Suspect]
     Indication: LIVER TRANSPLANT
     Dosage: ORAL, ORAL
     Route: 048
  2. PREDNISOLONE [Concomitant]

REACTIONS (8)
  - AUTOIMMUNE DISORDER [None]
  - EPSTEIN-BARR VIRUS INFECTION [None]
  - GRAFT VERSUS HOST DISEASE [None]
  - IDIOPATHIC THROMBOCYTOPENIC PURPURA [None]
  - LYMPHOPROLIFERATIVE DISORDER [None]
  - POST PROCEDURAL COMPLICATION [None]
  - THROMBOCYTOPENIC PURPURA [None]
  - VARICELLA [None]
